FAERS Safety Report 23347732 (Version 3)
Quarter: 2025Q1

REPORT INFORMATION
  Report Type: Report from Study
  Country: US (occurrence: US)
  Receive Date: 20231228
  Receipt Date: 20250221
  Transmission Date: 20250409
  Serious: Yes (Hospitalization)
  Sender: TAKEDA
  Company Number: US-TAKEDA-US201810825

PATIENT
  Age: 5 Year
  Sex: Male
  Weight: 34 kg

DRUGS (13)
  1. IDURSULFASE [Suspect]
     Active Substance: IDURSULFASE
     Indication: Mucopolysaccharidosis
     Dosage: 18 MILLIGRAM, 1/WEEK
     Dates: start: 20131211
  2. IDURSULFASE [Suspect]
     Active Substance: IDURSULFASE
     Indication: Mucopolysaccharidosis II
     Dosage: 30 MILLIGRAM, 1/WEEK
     Dates: start: 20201203
  3. IDURSULFASE [Suspect]
     Active Substance: IDURSULFASE
     Dosage: 30 MILLIGRAM, 1/WEEK
     Dates: start: 202012
  4. IDURSULFASE [Suspect]
     Active Substance: IDURSULFASE
     Dosage: 30 MILLIGRAM, 1/WEEK
     Dates: start: 202109
  5. IDURSULFASE [Suspect]
     Active Substance: IDURSULFASE
     Dosage: 30 MILLIGRAM, 1/WEEK
  6. ACETAMINOPHEN [Concomitant]
     Active Substance: ACETAMINOPHEN
  7. DIPHENHYDRAMINE [Concomitant]
     Active Substance: DIPHENHYDRAMINE
  8. HEPARIN [Concomitant]
     Active Substance: HEPARIN SODIUM
  9. LIDOCAINE\PRILOCAINE [Concomitant]
     Active Substance: LIDOCAINE\PRILOCAINE
  10. SODIUM CHLORIDE [Concomitant]
     Active Substance: SODIUM CHLORIDE
  11. SODIUM CHLORIDE [Concomitant]
     Active Substance: SODIUM CHLORIDE
  12. EPIPEN [Concomitant]
     Active Substance: EPINEPHRINE
  13. SOLU-CORTEF [Concomitant]
     Active Substance: HYDROCORTISONE SODIUM SUCCINATE

REACTIONS (7)
  - Constipation [Unknown]
  - Nasal congestion [Recovering/Resolving]
  - Influenza [Unknown]
  - COVID-19 [Unknown]
  - Insomnia [Unknown]
  - Arthralgia [Unknown]
  - Pyrexia [Recovered/Resolved]

NARRATIVE: CASE EVENT DATE: 20180311
